FAERS Safety Report 21800745 (Version 1)
Quarter: 2022Q4

REPORT INFORMATION
  Report Type: Report from Study
  Country: US (occurrence: US)
  Receive Date: 20221230
  Receipt Date: 20221230
  Transmission Date: 20230113
  Serious: No
  Sender: FDA-Public Use
  Company Number: US-ABBVIE-4218822

PATIENT
  Sex: Male

DRUGS (1)
  1. HUMIRA [Suspect]
     Active Substance: ADALIMUMAB
     Indication: Rheumatoid arthritis
     Dosage: CITRATE FREE, STRENGTH: 40 MG, ONSET FOR ZITS ON LEGS, ARMS, AND ARMPITS AND IRRITATION AROUND GR...
     Route: 058
     Dates: start: 20220901

REACTIONS (2)
  - Acne [Recovering/Resolving]
  - Skin irritation [Unknown]
